FAERS Safety Report 10301570 (Version 1)
Quarter: 2014Q3

REPORT INFORMATION
  Report Type: Spontaneous
  Country: US (occurrence: US)
  Receive Date: 20140714
  Receipt Date: 20140714
  Transmission Date: 20150326
  Serious: Yes (Other)
  Sender: FDA-Public Use
  Company Number: US-BAYER-2014-101868

PATIENT
  Age: 14 Year
  Sex: Female

DRUGS (2)
  1. ZETIA [Suspect]
     Active Substance: EZETIMIBE
     Dosage: 300 MG, UNK
     Route: 048
     Dates: start: 201407
  2. ALEVE [Suspect]
     Active Substance: NAPROXEN SODIUM
     Dosage: UNK
     Route: 048
     Dates: start: 201407

REACTIONS (4)
  - Vomiting [Recovered/Resolved]
  - Overdose [None]
  - Drug screen positive [None]
  - Amphetamines positive [None]

NARRATIVE: CASE EVENT DATE: 20140703
